FAERS Safety Report 12973204 (Version 6)
Quarter: 2017Q2

REPORT INFORMATION
  Report Type: Report from Study
  Country: US (occurrence: US)
  Receive Date: 20161124
  Receipt Date: 20170407
  Transmission Date: 20170830
  Serious: Yes (Other)
  Sender: FDA-Public Use
  Company Number: PHEH2016US030876

PATIENT
  Age: 54 Year
  Sex: Female

DRUGS (1)
  1. GILENYA [Suspect]
     Active Substance: FINGOLIMOD HYDROCHLORIDE
     Indication: RELAPSING-REMITTING MULTIPLE SCLEROSIS
     Dosage: 0.5 MG, QD
     Route: 048
     Dates: start: 20161117

REACTIONS (23)
  - Upper respiratory tract infection [Unknown]
  - Eyelid dermatochalasis [Unknown]
  - Movement disorder [Unknown]
  - Dyspepsia [Unknown]
  - Cognitive disorder [Unknown]
  - Decreased appetite [Unknown]
  - Malaise [Unknown]
  - Skin disorder [Unknown]
  - Headache [Unknown]
  - Chromaturia [Unknown]
  - Sinusitis [Unknown]
  - Fibromyalgia [Unknown]
  - Amnesia [Unknown]
  - Stress [Unknown]
  - Weight decreased [Unknown]
  - Cough [Unknown]
  - Visual impairment [Unknown]
  - Vision blurred [Unknown]
  - Gait disturbance [Unknown]
  - Urinary incontinence [Unknown]
  - Fall [Unknown]
  - Depression [Unknown]
  - Alopecia [Unknown]

NARRATIVE: CASE EVENT DATE: 201611
